FAERS Safety Report 6465369-5 (Version None)
Quarter: 2009Q4

REPORT INFORMATION
  Report Type: 
  Country: None (occurrence: None)
  Receive Date: 20091201
  Receipt Date: 20081121
  Transmission Date: 20100525
  Serious: No
  Sender: FDA-Public Use
  Company Number: US-AMGEN-KDL292390

PATIENT
  Sex: Female

DRUGS (2)
  1. ENBREL [Suspect]
     Indication: RHEUMATOID ARTHRITIS
     Route: 058
     Dates: start: 20040820
  2. ENBREL [Suspect]
     Indication: PSORIASIS

REACTIONS (7)
  - DRUG INEFFECTIVE [None]
  - EAR INFECTION [None]
  - HERPES ZOSTER [None]
  - INJECTION SITE PAIN [None]
  - PHOTOPHOBIA [None]
  - PSORIASIS [None]
  - VIRAL INFECTION [None]
